FAERS Safety Report 10548508 (Version 1)
Quarter: 2014Q4

REPORT INFORMATION
  Report Type: Spontaneous
  Country: US (occurrence: None)
  Receive Date: 20141015
  Receipt Date: 20141015
  Transmission Date: 20150529
  Serious: No
  Sender: FDA-Public Use
  Company Number: 2014US003407

PATIENT
  Age: 77 Year
  Sex: Female

DRUGS (5)
  1. TRAMADOL [Concomitant]
     Active Substance: TRAMADOL
  2. MAXZIDE-25 (HYDROCHLOROTHIAZIDE, TRIAMTERENE) [Concomitant]
  3. ICLUSIG [Suspect]
     Active Substance: PONATINIB
     Indication: POLYCYTHAEMIA VERA
     Route: 048
     Dates: start: 20140513
  4. LEVOTHYROXINE (LEVOTHYROXINE) [Concomitant]
     Active Substance: LEVOTHYROXINE
  5. POTASSIUM CHLORIDE (POTASSIUM CHLORIDE) [Concomitant]
     Active Substance: POTASSIUM CHLORIDE

REACTIONS (3)
  - Eye irritation [None]
  - Rash [None]
  - Vision blurred [None]

NARRATIVE: CASE EVENT DATE: 2014
